FAERS Safety Report 7074246-0 (Version None)
Quarter: 2010Q4

REPORT INFORMATION
  Report Type: 
  Country: None (occurrence: None)
  Receive Date: 20101029
  Receipt Date: 20101020
  Transmission Date: 20110411
  Serious: Yes (Death, Hospitalization)
  Sender: FDA-Public Use
  Company Number: JP-JNJFOC-20100908417

PATIENT
  Sex: Female
  Weight: 40 kg

DRUGS (14)
  1. REMICADE [Suspect]
     Indication: RHEUMATOID ARTHRITIS
     Route: 042
  2. REMICADE [Suspect]
     Dosage: 33 DOSES UNSPECIFIED DATES
     Route: 042
  3. REMICADE [Suspect]
     Route: 042
  4. RHEUMATREX [Suspect]
     Indication: RHEUMATOID ARTHRITIS
     Route: 048
  5. FOLIAMIN [Concomitant]
     Indication: RHEUMATOID ARTHRITIS
     Route: 048
  6. CYANOCOBALAMIN [Concomitant]
     Indication: NEUROPATHY PERIPHERAL
     Route: 048
  7. PREDNISOLONE [Concomitant]
     Indication: RHEUMATOID ARTHRITIS
     Route: 048
  8. BAKTAR [Concomitant]
     Indication: INFECTION PROPHYLAXIS
     Route: 048
  9. PARIET [Concomitant]
     Indication: INFECTION PROPHYLAXIS
     Route: 048
  10. BUFFERIN [Concomitant]
     Indication: ATRIAL FIBRILLATION
     Route: 048
  11. WARFARIN [Concomitant]
     Indication: ATRIAL FIBRILLATION
     Route: 048
  12. LUPRAC [Concomitant]
     Indication: ATRIAL FIBRILLATION
     Route: 048
  13. ALDACTONE [Concomitant]
     Indication: ATRIAL FIBRILLATION
     Route: 048
  14. ESTAZOLAM [Concomitant]
     Indication: INSOMNIA
     Route: 048

REACTIONS (5)
  - CARDIO-RESPIRATORY ARREST [None]
  - HEPATIC FAILURE [None]
  - HEPATITIS B [None]
  - HYPERKALAEMIA [None]
  - INFECTION [None]
